FAERS Safety Report 6119576-1 (Version None)
Quarter: 2009Q1

REPORT INFORMATION
  Report Type: 
  Country: None (occurrence: None)
  Receive Date: 20090316
  Receipt Date: 20090309
  Transmission Date: 20090719
  Serious: Yes (Hospitalization)
  Sender: FDA-Public Use
  Company Number: B0565031A

PATIENT
  Age: 41 Year
  Sex: Male

DRUGS (1)
  1. AUGMENTIN '125' [Suspect]
     Indication: PYREXIA
     Dosage: 2G PER DAY
     Route: 048
     Dates: start: 20090226, end: 20090226

REACTIONS (2)
  - PRURITUS [None]
  - THROAT TIGHTNESS [None]
